FAERS Safety Report 5699213-0 (Version None)
Quarter: 2008Q2

REPORT INFORMATION
  Report Type: 
  Country: None (occurrence: None)
  Receive Date: 20080407
  Receipt Date: 20080407
  Transmission Date: 20081010
  Serious: No
  Sender: FDA-Public Use
  Company Number: None

PATIENT
  Age: 73 Year
  Sex: Male

DRUGS (12)
  1. ANCEF [Suspect]
     Dates: start: 20070205, end: 20070205
  2. SAW PALMETTO [Concomitant]
  3. GINKO BILOBA [Concomitant]
  4. SELENIUM [Concomitant]
  5. CALCIUM [Concomitant]
  6. MAGNESIUM [Concomitant]
  7. VITAMIN CAP [Concomitant]
  8. SYNTHROID [Concomitant]
  9. ASPIRIN [Concomitant]
  10. MOTRIN [Concomitant]
  11. ULTRAM [Concomitant]
  12. UROXATRAL [Concomitant]

REACTIONS (3)
  - JAUNDICE CHOLESTATIC [None]
  - LIVER INJURY [None]
  - WEIGHT DECREASED [None]
